FAERS Safety Report 4772563-8 (Version None)
Quarter: 2005Q3

REPORT INFORMATION
  Report Type: 
  Country: None (occurrence: None)
  Receive Date: 20050919
  Receipt Date: 20050913
  Transmission Date: 20060218
  Serious: Yes (Other)
  Sender: FDA-Public Use
  Company Number: PHEH2005US10191

PATIENT
  Age: 46 Year
  Sex: Female

DRUGS (3)
  1. DIOVAN HCT [Suspect]
     Indication: HYPERTENSION
     Dosage: 80/12.5 MG QD
     Route: 048
     Dates: end: 20050301
  2. DIOVAN HCT [Suspect]
     Dosage: 160/12.5 MG QD
     Route: 048
     Dates: start: 20050301, end: 20050729
  3. ATENOLOL [Concomitant]

REACTIONS (11)
  - ANOREXIA [None]
  - CONCUSSION [None]
  - DRUG INEFFECTIVE [None]
  - EYE INJURY [None]
  - FALL [None]
  - HEAD INJURY [None]
  - HYPOTENSION [None]
  - LOSS OF CONSCIOUSNESS [None]
  - NAUSEA [None]
  - VOMITING [None]
  - WEIGHT DECREASED [None]
